FAERS Safety Report 5831410-3 (Version None)
Quarter: 2008Q3

REPORT INFORMATION
  Report Type: 
  Country: None (occurrence: None)
  Receive Date: 20080801
  Receipt Date: 20080722
  Transmission Date: 20090109
  Serious: Yes (Other)
  Sender: FDA-Public Use
  Company Number: CN-PFIZER INC-2008053164

PATIENT
  Age: 45 Year
  Sex: Male

DRUGS (3)
  1. DIFLUCAN [Suspect]
     Indication: FUNGAL INFECTION
     Route: 042
     Dates: start: 20080620, end: 20080621
  2. GALENIC /CILASTATIN/IMIPENEM/ [Concomitant]
     Route: 042
     Dates: start: 20080614, end: 20080614
  3. AMIKACIN [Concomitant]
     Route: 042

REACTIONS (1)
  - CYANOSIS [None]
